FAERS Safety Report 14372278 (Version 1)
Quarter: 2018Q1

REPORT INFORMATION
  Report Type: Spontaneous
  Country: US (occurrence: US)
  Receive Date: 20180110
  Receipt Date: 20180110
  Transmission Date: 20180509
  Serious: Yes (Other)
  Sender: FDA-Public Use
  Company Number: US-JNJFOC-20180106435

PATIENT
  Weight: 79.38 kg

DRUGS (5)
  1. XARELTO [Suspect]
     Active Substance: RIVAROXABAN
     Indication: PRODUCT USED FOR UNKNOWN INDICATION
     Dosage: TAKEN ONE TABLET EVERY DAY WITH EVENING MEAL),
     Route: 048
     Dates: start: 20170125
  2. ZOLOFT [Concomitant]
     Active Substance: SERTRALINE HYDROCHLORIDE
     Dosage: TAKEN ONE TABLET EVERY DAY
     Route: 048
     Dates: start: 20170215
  3. MELATONIN [Concomitant]
     Active Substance: MELATONIN
     Route: 048
     Dates: start: 20170215
  4. LATANOPROST. [Concomitant]
     Active Substance: LATANOPROST
     Dosage: INSTILL 1 DROP IN TO THE AFFECTED EYE EVERY DAY
     Route: 047
     Dates: start: 20150908
  5. ATORVASTATIN [Concomitant]
     Active Substance: ATORVASTATIN
     Dosage: TAKEN ONE TABLET EVERY DAY
     Route: 048
     Dates: start: 20170213

REACTIONS (2)
  - Essential hypertension [Unknown]
  - Cerebrovascular accident [Unknown]
